FAERS Safety Report 10353753 (Version 1)
Quarter: 2014Q3

REPORT INFORMATION
  Report Type: Spontaneous
  Country: US (occurrence: None)
  Receive Date: 20140729
  Receipt Date: 20140729
  Transmission Date: 20150326
  Serious: Yes (Hospitalization)
  Sender: FDA-Public Use
  Company Number: None

PATIENT
  Age: 15 Month
  Sex: Male
  Weight: 10.89 kg

DRUGS (1)
  1. ZITHROMAX [Suspect]
     Active Substance: AZITHROMYCIN DIHYDRATE
     Indication: INFECTION
     Dosage: TAKE 5ML FIRST DOSE THEN 2.5 ?ONCE DAILY ?TAKEN BY MOUTH
     Route: 048
     Dates: start: 20140706, end: 20140707

REACTIONS (3)
  - Hypersensitivity [None]
  - Stevens-Johnson syndrome [None]
  - Erythema multiforme [None]

NARRATIVE: CASE EVENT DATE: 20140710
